FAERS Safety Report 8256757-5 (Version None)
Quarter: 2012Q2

REPORT INFORMATION
  Report Type: 
  Country: None (occurrence: None)
  Receive Date: 20120403
  Receipt Date: 20120402
  Transmission Date: 20120825
  Serious: Yes (Other)
  Sender: FDA-Public Use
  Company Number: US-PFIZER INC-2012077596

PATIENT
  Sex: Female
  Weight: 70.295 kg

DRUGS (2)
  1. PANTOPRAZOLE [Suspect]
     Indication: GASTROOESOPHAGEAL REFLUX DISEASE
     Dosage: 40 MG, 1X/DAY
     Route: 048
     Dates: start: 20110101
  2. PANTOPRAZOLE [Suspect]
     Dosage: UNK
     Route: 048
     Dates: end: 20110101

REACTIONS (3)
  - BILIARY TRACT DISORDER [None]
  - GASTRIC DISORDER [None]
  - DRUG INEFFECTIVE [None]
